FAERS Safety Report 6669097-2 (Version None)
Quarter: 2010Q2

REPORT INFORMATION
  Report Type: 
  Country: None (occurrence: None)
  Receive Date: 20100406
  Receipt Date: 20100405
  Transmission Date: 20101027
  Serious: Yes (Hospitalization, Other)
  Sender: FDA-Public Use
  Company Number: US-ROXANE LABORATORIES, INC.-2010-RO-00140RO

PATIENT
  Sex: Male

DRUGS (26)
  1. METHADONE HCL [Suspect]
     Dates: start: 20091222, end: 20100110
  2. METHADONE HCL [Suspect]
  3. LORAZEPAM [Suspect]
     Dates: start: 20100115
  4. BUPRENORPHINE HYDROCHLORIDE [Suspect]
     Dates: start: 20100113
  5. APIXABAN [Suspect]
     Indication: THROMBOSIS PROPHYLAXIS
     Dosage: 10 MG
     Route: 048
     Dates: start: 20100121, end: 20100123
  6. PLACEBO [Suspect]
     Indication: THROMBOSIS PROPHYLAXIS
     Route: 048
     Dates: start: 20100121, end: 20100123
  7. ASPIRIN [Concomitant]
     Dates: start: 20091218
  8. CLOPIDOGREL BISULFATE [Concomitant]
     Dates: start: 20091219
  9. METOPROLOL TARTRATE [Concomitant]
  10. LOSARTAN POTASSIUM [Concomitant]
  11. SIMVASTATIN [Concomitant]
  12. OXYCODONE HCL [Concomitant]
     Dates: start: 20091219
  13. ISOSORBIDE DINITRATE [Concomitant]
  14. MIRALAX [Concomitant]
  15. FORMOTEROL FUMERATE [Concomitant]
  16. ALBUTEROL [Concomitant]
     Route: 055
  17. ALBUTEROL [Concomitant]
  18. DOCUSATE SODIUM [Concomitant]
  19. MOMETASONE FUROATE [Concomitant]
  20. SELENIUM SULFIDE [Concomitant]
  21. TIOTROPIUM BROMIDE [Concomitant]
  22. PROCHLORPERAZINE [Concomitant]
  23. LASIX [Concomitant]
     Dates: start: 20100104, end: 20100106
  24. NITROGLYCERIN [Concomitant]
  25. CLONIDINE [Concomitant]
     Dates: start: 20100115
  26. GABAPENTIN [Concomitant]
     Dates: start: 20100115

REACTIONS (2)
  - DRUG WITHDRAWAL SYNDROME [None]
  - ELECTROCARDIOGRAM QT PROLONGED [None]
